FAERS Safety Report 4352352-9 (Version None)
Quarter: 2004Q2

REPORT INFORMATION
  Report Type: 
  Country: None (occurrence: None)
  Receive Date: 20040427
  Receipt Date: 20030904
  Transmission Date: 20050107
  Serious: Yes (Other)
  Sender: FDA-Public Use
  Company Number: WAES 0309USA00541

PATIENT
  Sex: Male

DRUGS (1)
  1. SINGULAIR [Suspect]
     Dosage: PO
     Route: 048

REACTIONS (4)
  - ABDOMINAL DISCOMFORT [None]
  - CONVULSION [None]
  - MENTAL STATUS CHANGES [None]
  - TREMOR [None]
